FAERS Safety Report 8547897-1 (Version None)
Quarter: 2012Q3

REPORT INFORMATION
  Report Type: 
  Country: None (occurrence: None)
  Receive Date: 20120728
  Receipt Date: 20120713
  Transmission Date: 20120928
  Serious: Yes (Hospitalization)
  Sender: FDA-Public Use
  Company Number: CL-009507513-1207CHL009047

PATIENT

DRUGS (1)
  1. IMPLANON [Suspect]
     Indication: CONTRACEPTION
     Dosage: 25-70 MICROGRAMS DAILY, TRIENNIAL
     Route: 059
     Dates: start: 20120525

REACTIONS (5)
  - VOMITING [None]
  - TACHYCARDIA [None]
  - DYSPNOEA [None]
  - DIZZINESS [None]
  - MALAISE [None]
